FAERS Safety Report 5767348-X (Version None)
Quarter: 2008Q2

REPORT INFORMATION
  Report Type: 
  Country: None (occurrence: None)
  Receive Date: 20080612
  Receipt Date: 20080605
  Transmission Date: 20081010
  Serious: Yes (Hospitalization)
  Sender: FDA-Public Use
  Company Number: A0731476A

PATIENT
  Age: 78 Year
  Sex: Male

DRUGS (5)
  1. COREG [Suspect]
     Indication: HYPERTENSION
     Dosage: 6.25MG TWICE PER DAY
     Route: 048
  2. COREG CR [Suspect]
     Indication: HYPERTENSION
     Dosage: 40MG PER DAY
     Route: 048
  3. ENALAPRIL MALEATE [Concomitant]
  4. ASPIRIN [Concomitant]
  5. PLAVIX [Concomitant]

REACTIONS (5)
  - ANGIOPLASTY [None]
  - ARTERIAL OCCLUSIVE DISEASE [None]
  - DISSOCIATION [None]
  - FATIGUE [None]
  - HYPOTENSION [None]
